FAERS Safety Report 24754051 (Version 1)
Quarter: 2024Q4

REPORT INFORMATION
  Report Type: Spontaneous
  Country: US (occurrence: US)
  Receive Date: 20241219
  Receipt Date: 20241219
  Transmission Date: 20250114
  Serious: No
  Sender: PERRIGO
  Company Number: US-PERRIGO-24US007608

PATIENT
  Sex: Female

DRUGS (1)
  1. TIOCONAZOLE [Suspect]
     Active Substance: TIOCONAZOLE
     Indication: Vaginal infection
     Dosage: 300 MG, SINGLE
     Route: 067
     Dates: start: 20240809, end: 20240809

REACTIONS (3)
  - Vulvovaginal burning sensation [Unknown]
  - Vulvovaginal discomfort [Not Recovered/Not Resolved]
  - Drug effect less than expected [Unknown]

NARRATIVE: CASE EVENT DATE: 20240809
